FAERS Safety Report 13162374 (Version 3)
Quarter: 2017Q3

REPORT INFORMATION
  Report Type: Spontaneous
  Country: JP (occurrence: JP)
  Receive Date: 20170130
  Receipt Date: 20170712
  Transmission Date: 20171127
  Serious: Yes (Death, Hospitalization, Other)
  Sender: FDA-Public Use
  Company Number: JP-BAYER-2017-017614

PATIENT
  Age: 55 Year
  Sex: Male
  Weight: 38 kg

DRUGS (7)
  1. SENNOSIDE [Concomitant]
     Active Substance: SENNOSIDES
     Dosage: DAILY DOSE 12 MG
     Route: 048
     Dates: start: 201606
  2. MOBIC [Concomitant]
     Active Substance: MELOXICAM
     Dosage: DAILY DOSE 10 MG
     Route: 048
     Dates: start: 201606
  3. NEXAVAR [Suspect]
     Active Substance: SORAFENIB
     Indication: HEPATOCELLULAR CARCINOMA
     Dosage: DAILY DOSE 800 MG
     Route: 048
     Dates: start: 20160714, end: 20161101
  4. OXYCONTIN [Concomitant]
     Active Substance: OXYCODONE HYDROCHLORIDE
     Dosage: DAILY DOSE 100 MG
     Route: 048
     Dates: start: 201606
  5. BENIDIPINE HYDROCHLORIDE [Concomitant]
     Active Substance: BENIDIPINE HYDROCHLORIDE
     Dosage: DAILY DOSE 4 MG
     Route: 048
     Dates: start: 201606
  6. CALONAL [Concomitant]
     Active Substance: ACETAMINOPHEN
     Dosage: DAILY DOSE 1800 MG
     Route: 048
     Dates: start: 201606
  7. NESINA [Concomitant]
     Active Substance: ALOGLIPTIN BENZOATE
     Dosage: DAILY DOSE 25 MG
     Route: 048
     Dates: start: 201606

REACTIONS (4)
  - Pulmonary tuberculosis [Unknown]
  - Hypoxia [Unknown]
  - Lymphangiosis carcinomatosa [Fatal]
  - Pyrexia [Unknown]

NARRATIVE: CASE EVENT DATE: 20161028
